FAERS Safety Report 7717000-6 (Version None)
Quarter: 2011Q3

REPORT INFORMATION
  Report Type: 
  Country: None (occurrence: None)
  Receive Date: 20110829
  Receipt Date: 20110823
  Transmission Date: 20111222
  Serious: Yes (Other)
  Sender: FDA-Public Use
  Company Number: DK-AMGEN-DNKSP2011042120

PATIENT
  Age: 83 Year
  Sex: Male

DRUGS (8)
  1. STEROID ANTIBACTERIALS [Concomitant]
  2. FLUTICASONE PROPIONATE [Concomitant]
  3. PROLIA [Suspect]
     Indication: OSTEOPOROSIS
     Dosage: UNK
     Dates: start: 20110214
  4. ASPIRIN [Concomitant]
  5. FENOTEROL HYDROBROMIDE [Concomitant]
  6. SELOKEN ZOC/ASA [Concomitant]
  7. FUROSEMIDE [Concomitant]
  8. SIMAVASTATIN [Concomitant]

REACTIONS (4)
  - OEDEMA PERIPHERAL [None]
  - ERYTHEMA [None]
  - C-REACTIVE PROTEIN INCREASED [None]
  - JOINT SWELLING [None]
